FAERS Safety Report 4505952-7 (Version None)
Quarter: 2004Q4

REPORT INFORMATION
  Report Type: 
  Country: None (occurrence: None)
  Receive Date: 20041025
  Receipt Date: 20040504
  Transmission Date: 20050328
  Serious: Yes (Other)
  Sender: FDA-Public Use
  Company Number: US-JNJFOC-20040306677

PATIENT
  Age: 47 Year
  Sex: Female
  Weight: 57.6068 kg

DRUGS (3)
  1. REMICADE [Suspect]
     Indication: CROHN'S DISEASE
     Dosage: 300 MG, INTRAVENOUS
     Route: 042
     Dates: start: 20020930
  2. REMICADE [Suspect]
     Indication: CROHN'S DISEASE
     Dosage: 300 MG, INTRAVENOUS
     Route: 042
     Dates: start: 20021030
  3. REMICADE [Suspect]
     Indication: CROHN'S DISEASE
     Dosage: 300 MG, INTRAVENOUS
     Route: 042
     Dates: start: 20021130

REACTIONS (1)
  - ANAPHYLACTIC REACTION [None]
